FAERS Safety Report 9130415 (Version 1)
Quarter: 2013Q1

REPORT INFORMATION
  Report Type: Spontaneous
  Country: US (occurrence: US)
  Receive Date: 20130228
  Receipt Date: 20130228
  Transmission Date: 20140127
  Serious: Yes (Hospitalization)
  Sender: FDA-Public Use
  Company Number: US-ROCHE-1196303

PATIENT
  Age: 28 Year
  Sex: Male

DRUGS (1)
  1. ZELBORAF [Suspect]
     Indication: PRODUCT USED FOR UNKNOWN INDICATION
     Route: 048
     Dates: start: 201302

REACTIONS (2)
  - Dysphagia [Not Recovered/Not Resolved]
  - Rash [Recovering/Resolving]
